FAERS Safety Report 13780669 (Version 1)
Quarter: 2017Q3

REPORT INFORMATION
  Report Type: Spontaneous
  Country: US (occurrence: US)
  Receive Date: 20170724
  Receipt Date: 20170724
  Transmission Date: 20171127
  Serious: No
  Sender: FDA-Public Use
  Company Number: US-PFIZER INC-2017318434

PATIENT
  Age: 49 Year
  Sex: Male
  Weight: 63.5 kg

DRUGS (2)
  1. ADVIL [Suspect]
     Active Substance: IBUPROFEN
     Indication: BACK PAIN
     Dosage: 200MG TABLETS, TOOK 1 EVERY FEW DAYS
     Route: 048
     Dates: start: 201706, end: 201706
  2. ADVIL [Suspect]
     Active Substance: IBUPROFEN
     Indication: BACK PAIN
     Dosage: 200MG LIQUIGELS, TOOK ONE EVERY FEW DAYS
     Route: 048
     Dates: start: 201706, end: 201706

REACTIONS (1)
  - Drug ineffective [Unknown]

NARRATIVE: CASE EVENT DATE: 201706
